FAERS Safety Report 22591016 (Version 1)
Quarter: 2023Q2

REPORT INFORMATION
  Report Type: Spontaneous
  Country: US (occurrence: None)
  Receive Date: 20230611
  Receipt Date: 20230611
  Transmission Date: 20230722
  Serious: Yes (Disabling, Other)
  Sender: FDA-Public Use
  Company Number: None

PATIENT
  Age: 50 Year
  Sex: Female
  Weight: 94.05 kg

DRUGS (8)
  1. PIOGLITAZONE HYDROCHLORIDE [Suspect]
     Active Substance: PIOGLITAZONE HYDROCHLORIDE
     Indication: Diabetes mellitus
     Dosage: OTHER QUANTITY : 1 TABLET(S);?FREQUENCY : DAILY;?
     Route: 048
     Dates: start: 20210803, end: 20230607
  2. HYDROCHLOROTHIAZIDE [Concomitant]
     Active Substance: HYDROCHLOROTHIAZIDE
  3. SPIRONOLACTONE [Concomitant]
     Active Substance: SPIRONOLACTONE
  4. LISINOPRIL [Concomitant]
     Active Substance: LISINOPRIL
  5. Pi ogltazone HCL [Concomitant]
  6. FLOVENT HFA [Concomitant]
     Active Substance: FLUTICASONE PROPIONATE
  7. LEG BRACE [Concomitant]
  8. PRESCRIPTION GLASSES [Concomitant]

REACTIONS (10)
  - Fluid retention [None]
  - Tooth disorder [None]
  - Fall [None]
  - Tibia fracture [None]
  - Wrist fracture [None]
  - Weight increased [None]
  - Product complaint [None]
  - General physical health deterioration [None]
  - Insurance issue [None]
  - Visual impairment [None]

NARRATIVE: CASE EVENT DATE: 20230609
